FAERS Safety Report 18311720 (Version 1)
Quarter: 2020Q3

REPORT INFORMATION
  Report Type: Spontaneous
  Country: BE (occurrence: BE)
  Receive Date: 20200925
  Receipt Date: 20200925
  Transmission Date: 20201103
  Serious: Yes (Hospitalization)
  Sender: FDA-Public Use
  Company Number: BE-MYLANLABS-2020M1081087

PATIENT
  Age: 23 Year
  Sex: Male

DRUGS (2)
  1. ACETYLCYSTEINE. [Suspect]
     Active Substance: ACETYLCYSTEINE
     Indication: TOXICITY TO VARIOUS AGENTS
     Dosage: UNK
     Route: 042
  2. ACETAMINOPHEN. [Suspect]
     Active Substance: ACETAMINOPHEN
     Indication: PRODUCT USED FOR UNKNOWN INDICATION
     Dosage: INGESTION OF 10 G OF IMMEDIATE RELEASE PARACETAMOL OVER A 6 HOUR PERIOD
     Route: 048

REACTIONS (8)
  - Drug ineffective [Unknown]
  - Toxicity to various agents [Unknown]
  - Renal tubular necrosis [Recovering/Resolving]
  - Overdose [Unknown]
  - Acute kidney injury [Recovering/Resolving]
  - Oedema due to renal disease [Recovering/Resolving]
  - Drug-induced liver injury [Unknown]
  - Epigastric discomfort [Unknown]
